FAERS Safety Report 18490045 (Version 1)
Quarter: 2020Q4

REPORT INFORMATION
  Report Type: Spontaneous
  Country: US (occurrence: US)
  Receive Date: 20201111
  Receipt Date: 20201111
  Transmission Date: 20210114
  Serious: Yes (Other)
  Sender: FDA-Public Use
  Company Number: US-PFIZER INC-2020437996

PATIENT
  Age: 59 Year
  Sex: Female
  Weight: 56.7 kg

DRUGS (4)
  1. CARBOPLATIN. [Suspect]
     Active Substance: CARBOPLATIN
     Indication: NEOPLASM MALIGNANT
     Dosage: UNK
     Dates: start: 2007
  2. TARCEVA [Suspect]
     Active Substance: ERLOTINIB HYDROCHLORIDE
     Indication: CHEMOTHERAPY
     Dosage: UNK
  3. AVASTIN [ATORVASTATIN CALCIUM] [Suspect]
     Active Substance: ATORVASTATIN CALCIUM
     Dosage: UNK
  4. GEMZAR [Suspect]
     Active Substance: GEMCITABINE HYDROCHLORIDE
     Indication: CHEMOTHERAPY
     Dosage: UNK
     Dates: start: 2009

REACTIONS (2)
  - Hypothyroidism [Unknown]
  - Asthma [Unknown]
